FAERS Safety Report 4627047-4 (Version None)
Quarter: 2005Q2

REPORT INFORMATION
  Report Type: 
  Country: None (occurrence: None)
  Receive Date: 20050401
  Receipt Date: 20050401
  Transmission Date: 20051028
  Serious: Yes (Other)
  Sender: FDA-Public Use
  Company Number: None

PATIENT
  Age: 44 Year
  Sex: Female
  Weight: 90.7194 kg

DRUGS (4)
  1. FLEXERIL  GENERIC EQUIVALENTS [Suspect]
     Indication: CLAVICLE FRACTURE
     Dosage: ONCE/TWICE DAILY
  2. FLEXERIL  GENERIC EQUIVALENTS [Suspect]
     Indication: RHEUMATOID ARTHRITIS
     Dosage: ONCE/TWICE DAILY
  3. XANAX  GENERIC EQUIVALENTS [Suspect]
     Dosage: ONCE/TWICE DAILY
  4. LASIX GENERIC EQUIVALENTS [Suspect]
     Indication: FLUID RETENTION
     Dosage: ONCE/TWICE DAILY

REACTIONS (4)
  - CLAVICLE FRACTURE [None]
  - DRUG INTOLERANCE [None]
  - FALL [None]
  - VOMITING [None]
